FAERS Safety Report 18545113 (Version 1)
Quarter: 2020Q4

REPORT INFORMATION
  Report Type: Spontaneous
  Country: US (occurrence: US)
  Receive Date: 20201125
  Receipt Date: 20201125
  Transmission Date: 20210114
  Serious: Yes (Other)
  Sender: FDA-Public Use
  Company Number: US-PFIZER INC-2016430177

PATIENT
  Age: 64 Year
  Sex: Female

DRUGS (17)
  1. LYRICA [Suspect]
     Active Substance: PREGABALIN
     Indication: PAIN
     Dosage: 100 MG, 3X/DAY
     Route: 048
     Dates: start: 20160415
  2. CALTRATE WITH VITAMIN D [Concomitant]
     Active Substance: CALCIUM CARBONATE\CHOLECALCIFEROL
     Dosage: 1 DF, 2X/DAY (1 TAB, PO (BY MOUTH), BID (TWICE A DAY)
     Route: 048
  3. FLUOXETINE [Concomitant]
     Active Substance: FLUOXETINE HYDROCHLORIDE
     Dosage: 40 MG, DAILY
     Route: 048
  4. FLUOCINONIDE. [Concomitant]
     Active Substance: FLUOCINONIDE
     Dosage: 1 DF, 2X/DAY (1 APPLTN, TOPICAL 0.1% CREAM, BID, SKIN CONDITION, (STRONGER))
     Route: 061
  5. PREGABALIN. [Concomitant]
     Active Substance: PREGABALIN
     Dosage: 100 MG, 3X/DAY
     Route: 048
  6. RANITIDINE. [Concomitant]
     Active Substance: RANITIDINE
     Indication: GASTROOESOPHAGEAL REFLUX DISEASE
     Dosage: 150 MG, 2X/DAY (1 TAB, PO (BY MOUTH), BID (TWICE A DAY), AS NEEDED FOR CONTROL OF STOMACH ACID)
     Route: 048
  7. ATORVASTATIN [Concomitant]
     Active Substance: ATORVASTATIN
     Indication: BLOOD CHOLESTEROL ABNORMAL
     Dosage: 20 MG, 1X/DAY (1 TAB, PO (BY MOUTH), QHS (AT BEDTIME)
     Route: 048
  8. CLONAZEPAM. [Concomitant]
     Active Substance: CLONAZEPAM
     Indication: ANXIETY
     Dosage: 1 MG, 2X/DAY
     Route: 048
  9. FLUOCINONIDE. [Concomitant]
     Active Substance: FLUOCINONIDE
     Indication: DYSHIDROTIC ECZEMA
     Dosage: 1 DF, 3X/DAY (1 APPLTN, TOPICAL 0.05% CREAM, TID)
     Route: 061
  10. FLUOCINONIDE. [Concomitant]
     Active Substance: FLUOCINONIDE
     Dosage: 1 DF, 2X/DAY (1 APPLTN, TOPICAL 0.05% CREAM, BID, SKIN CONDITION, (WEAKER))
     Route: 061
  11. MECLIZINE [Concomitant]
     Active Substance: MECLIZINE HYDROCHLORIDE
     Indication: DIZZINESS
     Dosage: PRN AS NEEDED, 1/2 TO 1 TAB PO (ORAL) TID (THREE TIMES A DAY)
     Route: 048
  12. TRAMADOL. [Concomitant]
     Active Substance: TRAMADOL
     Indication: PAIN
     Dosage: 50 MG, AS NEEDED (1 TAB, PO (BY MOUTH), Q6HR (EVERY 6 HOURS), PRN (AS NEEDED))
     Route: 048
  13. LYRICA [Suspect]
     Active Substance: PREGABALIN
     Indication: NEUROPATHY PERIPHERAL
  14. ASPIRIN 81 [Concomitant]
     Active Substance: ASPIRIN
     Dosage: 81 MG, DAILY
     Route: 048
  15. INFLUENZA VIRUS VACCINE INACTIVATED [Concomitant]
     Active Substance: INFLUENZA VIRUS VACCINE
     Dosage: 0.5 ML
     Route: 030
  16. OMEPRAZOLE. [Concomitant]
     Active Substance: OMEPRAZOLE
     Dosage: 20 MG, 2X/DAY
     Route: 048
  17. PRAZOSIN. [Concomitant]
     Active Substance: PRAZOSIN
     Dosage: 2-3 CAP, PO (BY MOUTH), QHS (AT BEDTIME)
     Route: 048

REACTIONS (1)
  - Cervical vertebral fracture [Unknown]
